FAERS Safety Report 9507337 (Version 2)
Quarter: 2014Q1

REPORT INFORMATION
  Report Type: Spontaneous
  Country: US (occurrence: None)
  Receive Date: 20130305
  Receipt Date: 20140306
  Transmission Date: 20141002
  Serious: Yes (Hospitalization, Other)
  Sender: FDA-Public Use
  Company Number: 163-21880-10011124

PATIENT
  Age: 70 Year
  Sex: Male

DRUGS (12)
  1. REVLIMID [Suspect]
     Indication: PLASMA CELL MYELOMA
     Route: 048
     Dates: start: 20070424
  2. PROSCAR (FINASTERIDE) [Concomitant]
  3. SYNTHROID [Concomitant]
  4. GABAPENTIN [Concomitant]
  5. CASODEX [Concomitant]
  6. ASPIRIN [Concomitant]
  7. PERCOCET [Concomitant]
  8. LUPRON [Concomitant]
  9. ZOMETA [Concomitant]
  10. NOVOLOG (INSULIN ASPART) [Concomitant]
  11. CALCIUM (CALCIUM) [Concomitant]
  12. VITAMIN D (ERGOCALCIFEROL) [Concomitant]

REACTIONS (8)
  - Hypotension [None]
  - Heart rate decreased [None]
  - Fatigue [None]
  - Vertigo [None]
  - Dizziness [None]
  - Rash [None]
  - Constipation [None]
  - Dizziness [None]
